FAERS Safety Report 14980137 (Version 1)
Quarter: 2018Q2

REPORT INFORMATION
  Report Type: Spontaneous
  Country: US (occurrence: US)
  Receive Date: 20180516
  Receipt Date: 20180516
  Transmission Date: 20180711
  Serious: Yes (Hospitalization)
  Sender: FDA-Public Use
  Company Number: None

PATIENT
  Age: 61 Year
  Sex: Male

DRUGS (12)
  1. HYDROCODONE/APAP 5-325MG [Concomitant]
  2. CIPROFLOXACIN. [Concomitant]
     Active Substance: CIPROFLOXACIN
     Dates: start: 20180426, end: 20180506
  3. PROAIR HFA AER [Concomitant]
  4. LISINOPRIL 10 MG [Concomitant]
     Active Substance: LISINOPRIL
     Dates: start: 20180307
  5. OMEPRAZOLE 20MG [Concomitant]
     Active Substance: OMEPRAZOLE
     Dates: start: 20171218
  6. VOSEVI [Suspect]
     Active Substance: SOFOSBUVIR\VELPATASVIR\VOXILAPREVIR
     Indication: HEPATITIS C
     Route: 048
     Dates: start: 20180419, end: 20180516
  7. CEFUROXIME 500MG [Concomitant]
  8. DILTIAZEM 180MG [Concomitant]
  9. EXTRA ACTION SYP 100-10/5 [Concomitant]
  10. MELATONIN 5-10MG [Concomitant]
  11. PREDNISONE 10 MG [Concomitant]
     Active Substance: PREDNISONE
     Dates: start: 20180425, end: 20180508
  12. TERBINAFINE CREAM 1% [Concomitant]
     Active Substance: TERBINAFINE
     Dates: start: 20180123, end: 20180202

REACTIONS (3)
  - Condition aggravated [None]
  - Pneumonia [None]
  - Cough [None]

NARRATIVE: CASE EVENT DATE: 20180501
